FAERS Safety Report 9971526 (Version 1)
Quarter: 2014Q1

REPORT INFORMATION
  Report Type: Spontaneous
  Country: IL (occurrence: IL)
  Receive Date: 20140306
  Receipt Date: 20140306
  Transmission Date: 20141002
  Serious: Yes (Hospitalization)
  Sender: FDA-Public Use
  Company Number: PHHY2014IL027087

PATIENT
  Age: 73 Year
  Sex: Female

DRUGS (4)
  1. ZOLEDRONATE [Suspect]
     Indication: OSTEOPOROSIS
     Route: 042
  2. VITAMIN D [Suspect]
     Indication: OSTEOPOROSIS
  3. RALOXIFENE [Suspect]
     Indication: OSTEOPOROSIS
  4. ALENDRONATE [Suspect]
     Indication: OSTEOPOROSIS

REACTIONS (3)
  - Femur fracture [Unknown]
  - Pain in extremity [Unknown]
  - Fall [Unknown]
